FAERS Safety Report 4350567-7 (Version None)
Quarter: 2004Q2

REPORT INFORMATION
  Report Type: 
  Country: None (occurrence: None)
  Receive Date: 20040429
  Receipt Date: 20040419
  Transmission Date: 20050107
  Serious: Yes (Hospitalization)
  Sender: FDA-Public Use
  Company Number: 2004027125

PATIENT
  Age: 11 Year
  Sex: Male

DRUGS (1)
  1. DRAMAMINE-D TAB [Suspect]
     Indication: INTENTIONAL OVERDOSE
     Dosage: 55 TABS WITHIN 2 HOURS, ORAL
     Route: 048
     Dates: start: 20040413, end: 20040413

REACTIONS (5)
  - BLOOD PRESSURE INCREASED [None]
  - DIZZINESS [None]
  - HALLUCINATION [None]
  - HEART RATE INCREASED [None]
  - OVERDOSE [None]
